FAERS Safety Report 10024913 (Version 1)
Quarter: 2014Q1

REPORT INFORMATION
  Report Type: Spontaneous
  Country: FR (occurrence: FR)
  Receive Date: 20140320
  Receipt Date: 20140320
  Transmission Date: 20141002
  Serious: Yes (Other)
  Sender: FDA-Public Use
  Company Number: FR-ASTRAZENECA-2014SE18183

PATIENT
  Age: 834 Month
  Sex: Male

DRUGS (4)
  1. INEXIUM [Suspect]
     Indication: HIATUS HERNIA
     Route: 048
     Dates: start: 2013
  2. PLAVIX [Suspect]
     Indication: ACUTE CORONARY SYNDROME
     Route: 048
  3. INEGY [Suspect]
     Indication: ACUTE CORONARY SYNDROME
     Dosage: 10-20 MG, DAILY
     Route: 048
  4. ISOPTINE LP 240 MG [Suspect]
     Indication: ARRHYTHMIA
     Route: 048

REACTIONS (1)
  - Peripheral sensory neuropathy [Not Recovered/Not Resolved]
